FAERS Safety Report 12517543 (Version 4)
Quarter: 2017Q2

REPORT INFORMATION
  Report Type: Spontaneous
  Country: US (occurrence: US)
  Receive Date: 20160630
  Receipt Date: 20170424
  Transmission Date: 20170830
  Serious: No
  Sender: FDA-Public Use
  Company Number: US-ACTELION-A-US2016-138103

PATIENT
  Age: 80 Year
  Sex: Female

DRUGS (14)
  1. BUMETANIDE. [Concomitant]
     Active Substance: BUMETANIDE
  2. INDAPAMIDE. [Concomitant]
     Active Substance: INDAPAMIDE
  3. DOXAZOSIN [Concomitant]
     Active Substance: DOXAZOSIN\DOXAZOSIN MESYLATE
  4. PIOGLITAZONE. [Concomitant]
     Active Substance: PIOGLITAZONE
  5. UPTRAVI [Suspect]
     Active Substance: SELEXIPAG
     Dosage: 200 MCG, BID
     Route: 048
     Dates: start: 20160606
  6. UPTRAVI [Suspect]
     Active Substance: SELEXIPAG
     Indication: PULMONARY ARTERIAL HYPERTENSION
     Dosage: 400 MCG, BID
     Route: 048
     Dates: start: 20160616, end: 20161005
  7. POTASSIUM [Concomitant]
     Active Substance: POTASSIUM
  8. BYETTA [Concomitant]
     Active Substance: EXENATIDE
  9. UPTRAVI [Suspect]
     Active Substance: SELEXIPAG
     Dosage: 200 MCG, BID
     Route: 048
     Dates: start: 20160714, end: 20170407
  10. VITAMIN C [Concomitant]
     Active Substance: ASCORBIC ACID
  11. CALCIUM [Concomitant]
     Active Substance: CALCIUM
  12. VENASTAT [Concomitant]
     Active Substance: HORSE CHESTNUT
  13. IRBESARTAN. [Concomitant]
     Active Substance: IRBESARTAN
  14. UPTRAVI [Suspect]
     Active Substance: SELEXIPAG
     Dosage: 600 MCG, BID
     Route: 048
     Dates: start: 20160722

REACTIONS (9)
  - Headache [Unknown]
  - Muscular weakness [Recovered/Resolved]
  - Tenderness [Unknown]
  - Drug dose omission [Unknown]
  - Oedema peripheral [Unknown]
  - Fatigue [Unknown]
  - Pain in extremity [Unknown]
  - Flushing [Unknown]
  - Myalgia [Unknown]

NARRATIVE: CASE EVENT DATE: 20160728
